FAERS Safety Report 14281036 (Version 2)
Quarter: 2017Q4

REPORT INFORMATION
  Report Type: Spontaneous
  Country: GB (occurrence: GB)
  Receive Date: 20171213
  Receipt Date: 20171219
  Transmission Date: 20180321
  Serious: Yes (Hospitalization)
  Sender: FDA-Public Use
  Company Number: GB-AUROBINDO-AUR-APL-2017-45235

PATIENT
  Age: 69 Year
  Sex: Female

DRUGS (4)
  1. CIDOFOVIR. [Suspect]
     Active Substance: CIDOFOVIR
     Dosage: AT FORTNIGHTLY INTERVALS
  2. MEFLOQUINE [Suspect]
     Active Substance: MEFLOQUINE
     Indication: PROGRESSIVE MULTIFOCAL LEUKOENCEPHALOPATHY
     Dosage: 250 MG DAILY FOR 3 DAYS INITIALLY, FOLLOWED BY 250 MG ONCE A WEEK
     Route: 065
  3. CIDOFOVIR. [Suspect]
     Active Substance: CIDOFOVIR
     Indication: PROGRESSIVE MULTIFOCAL LEUKOENCEPHALOPATHY
     Dosage: 5 MG/KG, UNK
  4. MIRTAZAPINE. [Suspect]
     Active Substance: MIRTAZAPINE
     Indication: PROGRESSIVE MULTIFOCAL LEUKOENCEPHALOPATHY
     Dosage: 30 MG, ONCE A DAY
     Route: 065

REACTIONS (2)
  - Drug ineffective [Unknown]
  - Condition aggravated [Unknown]
